FAERS Safety Report 5878819-X (Version None)
Quarter: 2008Q3

REPORT INFORMATION
  Report Type: 
  Country: None (occurrence: None)
  Receive Date: 20080910
  Receipt Date: 20080902
  Transmission Date: 20090109
  Serious: Yes (Hospitalization)
  Sender: FDA-Public Use
  Company Number: 2008BI017279

PATIENT
  Age: 36 Year
  Sex: Male

DRUGS (1)
  1. TYSABRI [Suspect]
     Indication: MULTIPLE SCLEROSIS
     Dosage: 300 MG; QM; IV
     Route: 042
     Dates: start: 20080512, end: 20080512

REACTIONS (5)
  - CONVULSION [None]
  - FALL [None]
  - HEART RATE INCREASED [None]
  - MULTIPLE SCLEROSIS [None]
  - PYREXIA [None]
